FAERS Safety Report 12441255 (Version 1)
Quarter: 2016Q2

REPORT INFORMATION
  Report Type: Spontaneous
  Country: US (occurrence: US)
  Receive Date: 20160607
  Receipt Date: 20160607
  Transmission Date: 20160815
  Serious: Yes (Hospitalization, Disabling)
  Sender: FDA-Public Use
  Company Number: US-BAUSCH-BL-2016-012330

PATIENT
  Age: 98 Year
  Sex: Male

DRUGS (25)
  1. LATANOPROST OPHTHALMIC SOLUTION 0.005% [Suspect]
     Active Substance: LATANOPROST
     Indication: GLAUCOMA
     Dosage: SINCE 3 YEARS
     Route: 047
  2. VITAMIN D 2000 I.U. [Concomitant]
     Indication: VITAMIN D DEFICIENCY
     Route: 048
     Dates: start: 20160323
  3. PLAVIX [Concomitant]
     Active Substance: CLOPIDOGREL BISULFATE
     Indication: ARTERIOSCLEROSIS
     Route: 048
     Dates: start: 201601
  4. GUAIFENESIN ER 600 MG TB12 [Concomitant]
     Indication: PRODUCTIVE COUGH
     Dosage: ONE TABLET TWICE (12 HOURS) AS NEEDED
     Route: 048
     Dates: start: 20160323
  5. ACIDOPHILUS [Concomitant]
     Active Substance: LACTOBACILLUS ACIDOPHILUS
     Indication: PROPHYLAXIS
     Route: 048
     Dates: start: 20160323
  6. COENZYME Q12 [Concomitant]
     Indication: SUPPLEMENTATION THERAPY
     Route: 048
     Dates: start: 20160323
  7. HYDROCORTISONE-ACETIC ACID DROPS 2%-1% [Concomitant]
     Indication: PRODUCT USED FOR UNKNOWN INDICATION
     Dosage: 3 DROPS IN AFFECTED RIGHT EAR AT BEDTIME (NIGHT)
     Route: 001
     Dates: start: 20150301
  8. LUTEIN [Concomitant]
     Active Substance: LUTEIN
     Indication: GLAUCOMA
     Route: 048
     Dates: start: 20160323
  9. ZYRTEC [Concomitant]
     Active Substance: CETIRIZINE HYDROCHLORIDE
     Indication: SEASONAL ALLERGY
     Dosage: AS NEEDED
     Route: 048
     Dates: start: 20160323
  10. LATANOPROST OPHTHALMIC SOLUTION 0.005% [Suspect]
     Active Substance: LATANOPROST
     Dosage: NEWLY OPENED BOTTLE
     Route: 047
     Dates: start: 20160520, end: 20160520
  11. LATANOPROST OPHTHALMIC SOLUTION 0.005% [Suspect]
     Active Substance: LATANOPROST
     Dosage: (50 UG/ML), 1 DROP EACH EYE AT BEDTIME (NIGHT)
     Route: 047
     Dates: start: 20130312
  12. METOPROLOL SUCCINATE ER [Concomitant]
     Active Substance: METOPROLOL SUCCINATE
     Indication: HYPERTENSION
     Route: 048
  13. MECLIZINE HCL [Concomitant]
     Active Substance: MECLIZINE HYDROCHLORIDE
     Indication: VERTIGO
     Dosage: ONE TABLET THRICE (8 HOURS) AS NEEDED
     Route: 048
     Dates: start: 20160323
  14. ARMOUR THYROID [Concomitant]
     Active Substance: THYROID, PORCINE
     Indication: HYPOTHYROIDISM
     Dosage: 60 MG AND 15 MG (TOTAL 75 MG) ON EMPTY STOMACH
     Route: 048
     Dates: start: 20160323
  15. ARMOUR THYROID [Concomitant]
     Active Substance: THYROID, PORCINE
     Dosage: 60 MG AND 15 MG (TOTAL 75 MG) ON EMPTY STOMACH
     Route: 048
     Dates: start: 20160323
  16. SENEXON-S [Concomitant]
     Active Substance: DOCUSATE SODIUM\SENNOSIDES A AND B
     Indication: CONSTIPATION
     Dosage: 8.5 MG-50 MG
     Route: 048
     Dates: start: 20141229
  17. LISINOPRIL. [Concomitant]
     Active Substance: LISINOPRIL
     Indication: HYPERTENSION
     Route: 048
     Dates: start: 20160329
  18. METOPROLOL SUCCINATE ER [Concomitant]
     Active Substance: METOPROLOL SUCCINATE
     Route: 048
     Dates: start: 201601, end: 2016
  19. PLAVIX [Concomitant]
     Active Substance: CLOPIDOGREL BISULFATE
     Route: 048
     Dates: start: 20160323
  20. SALINE NASAL SPRAY [Concomitant]
     Active Substance: SODIUM CHLORIDE
     Indication: HYPERSENSITIVITY
     Dosage: ONE SPRAY BOTH NOSTRILS EVERY 6 HOURS AS NEEDED
     Route: 045
     Dates: start: 20160323
  21. METOPROLOL SUCCINATE ER [Concomitant]
     Active Substance: METOPROLOL SUCCINATE
     Route: 048
     Dates: start: 20160401
  22. AMLODIPINE [Concomitant]
     Active Substance: AMLODIPINE BESYLATE
     Indication: HYPERTENSION
     Route: 048
     Dates: start: 20160407
  23. TUBERCULIN PPD 5 UNIT/0.1ML SOLN [Concomitant]
     Indication: PRODUCT USED FOR UNKNOWN INDICATION
     Dosage: 5 UNIT/0.1ML SOLUTION
     Route: 065
     Dates: start: 20151209
  24. LATANOPROST OPHTHALMIC SOLUTION 0.005% [Suspect]
     Active Substance: LATANOPROST
     Dosage: 1 DROP EACH EYE AT BEDTIME (NIGHT)
     Route: 047
     Dates: start: 20141229
  25. CLONIDINE HCL [Concomitant]
     Active Substance: CLONIDINE HYDROCHLORIDE
     Indication: HYPERTENSION
     Dosage: ONE TABLET TWICE DAILY AS NEEDED FOR SBP MORE THAN 180
     Route: 048
     Dates: start: 20160329

REACTIONS (6)
  - Eye pain [Recovering/Resolving]
  - Eye irritation [Recovering/Resolving]
  - Cerebrovascular accident [Recovering/Resolving]
  - Vision blurred [Recovering/Resolving]
  - Ocular hyperaemia [Recovering/Resolving]
  - Eye discharge [Recovering/Resolving]

NARRATIVE: CASE EVENT DATE: 201601
